FAERS Safety Report 8459899 (Version 2)
Quarter: 2014Q1

REPORT INFORMATION
  Report Type: Spontaneous
  Country: US (occurrence: US)
  Receive Date: 20120314
  Receipt Date: 20140305
  Transmission Date: 20141002
  Serious: No
  Sender: FDA-Public Use
  Company Number: US-ASTRAZENECA-2011SE13555

PATIENT
  Age: 53 Year
  Sex: Female
  Weight: 79.4 kg

DRUGS (2)
  1. METOPROLOL SUCCINATE [Suspect]
     Indication: PALPITATIONS
     Route: 048
  2. METOPROLOL SUCCINATE [Suspect]
     Indication: PALPITATIONS
     Route: 048
     Dates: start: 201402

REACTIONS (2)
  - Muscle spasms [Unknown]
  - Off label use [Unknown]
